FAERS Safety Report 5560159-X (Version None)
Quarter: 2007Q4

REPORT INFORMATION
  Report Type: 
  Country: None (occurrence: None)
  Receive Date: 20071214
  Receipt Date: 20071112
  Transmission Date: 20080405
  Serious: No
  Sender: FDA-Public Use
  Company Number: US-ABBOTT-07P-163-0422543-00

PATIENT
  Sex: Male
  Weight: 85.352 kg

DRUGS (5)
  1. HUMIRA [Suspect]
     Indication: CROHN'S DISEASE
     Route: 058
     Dates: start: 20071001, end: 20071001
  2. HUMIRA [Suspect]
     Route: 058
     Dates: start: 20071001
  3. PREDNISONE [Concomitant]
     Indication: DRUG USE FOR UNKNOWN INDICATION
  4. METRONIDAZOLE HCL [Concomitant]
     Indication: DRUG USE FOR UNKNOWN INDICATION
  5. LANSOPRAZOLE [Concomitant]
     Indication: DRUG USE FOR UNKNOWN INDICATION

REACTIONS (2)
  - RASH [None]
  - SWELLING FACE [None]
